FAERS Safety Report 6834952-7 (Version None)
Quarter: 2010Q3

REPORT INFORMATION
  Report Type: 
  Country: None (occurrence: None)
  Receive Date: 20100712
  Receipt Date: 20070418
  Transmission Date: 20110219
  Serious: No
  Sender: FDA-Public Use
  Company Number: US-PFIZER INC-2007031981

PATIENT
  Sex: Male
  Weight: 79.5 kg

DRUGS (3)
  1. CHANTIX [Suspect]
     Indication: SMOKING CESSATION THERAPY
     Dates: start: 20070409
  2. MEDICAR [Concomitant]
     Indication: BLOOD CHOLESTEROL INCREASED
  3. HYDROCHLOROTHIAZIDE [Concomitant]
     Indication: HYPERTENSION

REACTIONS (1)
  - CONSTIPATION [None]
